FAERS Safety Report 6672152-4 (Version None)
Quarter: 2010Q2

REPORT INFORMATION
  Report Type: 
  Country: None (occurrence: None)
  Receive Date: 20100407
  Receipt Date: 20100407
  Transmission Date: 20101027
  Serious: No
  Sender: FDA-Public Use
  Company Number: None

PATIENT
  Age: 18 Year
  Sex: Male
  Weight: 79.3795 kg

DRUGS (1)
  1. ZICAM COLD REMEDY NASAL GEL ZICAM LLC [Suspect]
     Dosage: NASAL
     Route: 045

REACTIONS (3)
  - BURNING SENSATION [None]
  - DECREASED APPETITE [None]
  - PAROSMIA [None]
